FAERS Safety Report 7082786-3 (Version None)
Quarter: 2010Q4

REPORT INFORMATION
  Report Type: 
  Country: None (occurrence: None)
  Receive Date: 20101104
  Receipt Date: 20101026
  Transmission Date: 20110411
  Serious: Yes (Other)
  Sender: FDA-Public Use
  Company Number: IT-NOVOPROD-317229

PATIENT
  Age: 70 Year
  Sex: Male

DRUGS (2)
  1. PROTAPHANE [Suspect]
     Indication: TYPE 2 DIABETES MELLITUS
  2. ACTRAPID [Suspect]
     Indication: TYPE 2 DIABETES MELLITUS

REACTIONS (1)
  - ANAPHYLACTIC SHOCK [None]
